FAERS Safety Report 5126133-2 (Version None)
Quarter: 2006Q3

REPORT INFORMATION
  Report Type: 
  Country: None (occurrence: None)
  Receive Date: 20060823
  Receipt Date: 20060420
  Transmission Date: 20061208
  Serious: Yes (Other)
  Sender: FDA-Public Use
  Company Number: PHEH2006US03455

PATIENT
  Age: 85 Year

DRUGS (1)
  1. FAMVIR [Suspect]
     Indication: HERPES ZOSTER
     Dosage: ORAL
     Route: 048

REACTIONS (1)
  - CONFUSIONAL STATE [None]
